FAERS Safety Report 7707968-6 (Version None)
Quarter: 2011Q3

REPORT INFORMATION
  Report Type: 
  Country: None (occurrence: None)
  Receive Date: 20110824
  Receipt Date: 20101028
  Transmission Date: 20111222
  Serious: Yes (Hospitalization)
  Sender: FDA-Public Use
  Company Number: PHHY2011TR72097

PATIENT
  Age: 3 Hour
  Sex: Female
  Weight: 3.16 kg

DRUGS (3)
  1. VITAMIN K TAB [Suspect]
  2. OXYGEN [Concomitant]
  3. METHERGINE [Suspect]
     Route: 030

REACTIONS (6)
  - LETHARGY [None]
  - APPETITE DISORDER [None]
  - PERIPHERAL VASCULAR DISORDER [None]
  - HYPOXIA [None]
  - CYANOSIS [None]
  - WRONG DRUG ADMINISTERED [None]
